FAERS Safety Report 16233773 (Version 1)
Quarter: 2019Q2

REPORT INFORMATION
  Report Type: Spontaneous
  Country: US (occurrence: US)
  Receive Date: 20190423
  Receipt Date: 20190423
  Transmission Date: 20190711
  Serious: Yes (Other)
  Sender: FDA-Public Use
  Company Number: None

PATIENT
  Age: 98 Year
  Sex: Male
  Weight: 64.35 kg

DRUGS (1)
  1. LOSARTAN POTASSIUM. [Suspect]
     Active Substance: LOSARTAN POTASSIUM
     Indication: HYPERTENSION
     Dosage: ?          OTHER FREQUENCY:SYSTOLIC OVER 150;?
     Route: 048

REACTIONS (4)
  - Prostatic specific antigen increased [None]
  - Product contamination physical [None]
  - Blood lead increased [None]
  - Carcinogenicity [None]

NARRATIVE: CASE EVENT DATE: 20190409
